FAERS Safety Report 13294453 (Version 1)
Quarter: 2017Q1

REPORT INFORMATION
  Report Type: Spontaneous
  Country: SE (occurrence: SE)
  Receive Date: 20170303
  Receipt Date: 20170303
  Transmission Date: 20170428
  Serious: Yes (Other)
  Sender: FDA-Public Use
  Company Number: SE-BAXALTA-2017BLT001502

PATIENT
  Age: 4 Year
  Sex: Male

DRUGS (2)
  1. SUBCUVIA [Suspect]
     Active Substance: HUMAN IMMUNOGLOBULIN G
     Indication: PRODUCT USED FOR UNKNOWN INDICATION
     Dosage: 10 ML
     Route: 065
  2. SUBCUVIA [Suspect]
     Active Substance: HUMAN IMMUNOGLOBULIN G
     Dosage: 5 ML,
     Route: 065

REACTIONS (5)
  - Pain [Unknown]
  - Body temperature abnormal [Unknown]
  - Arthralgia [Unknown]
  - Chills [Unknown]
  - Nasopharyngitis [Unknown]
